FAERS Safety Report 8666343 (Version 2)
Quarter: 2013Q4

REPORT INFORMATION
  Report Type: Spontaneous
  Country: US (occurrence: US)
  Receive Date: 20120716
  Receipt Date: 20131007
  Transmission Date: 20140711
  Serious: Yes (Hospitalization, Other)
  Sender: FDA-Public Use
  Company Number: PHEH2012US013839

PATIENT
  Age: 29 Year
  Sex: Female

DRUGS (6)
  1. GILENYA [Suspect]
     Indication: MULTIPLE SCLEROSIS
     Dosage: 0.5 MG, QD
     Route: 048
     Dates: end: 20120525
  2. OXYCONTIN [Concomitant]
     Indication: BACK PAIN
     Dosage: 1 DF, PRN
     Route: 048
  3. FENTANYL [Concomitant]
     Indication: BACK PAIN
     Route: 061
  4. FLEXERIL [Concomitant]
     Indication: BACK PAIN
     Route: 048
  5. AMBIEN [Concomitant]
     Indication: INSOMNIA
     Route: 048
  6. XANAX [Concomitant]
     Indication: ANXIETY
     Route: 048

REACTIONS (7)
  - Hypotension [Unknown]
  - Loss of consciousness [Unknown]
  - Dizziness [Unknown]
  - Diarrhoea [Unknown]
  - Oral candidiasis [Unknown]
  - Dehydration [Recovered/Resolved]
  - Balance disorder [Unknown]
